FAERS Safety Report 9524192 (Version 1)
Quarter: 2013Q1

REPORT INFORMATION
  Report Type: Spontaneous
  Country: US (occurrence: None)
  Receive Date: 20130305
  Receipt Date: 20130305
  Transmission Date: 20140127
  Serious: Yes (Hospitalization)
  Sender: FDA-Public Use
  Company Number: 163-21880-12020784

PATIENT
  Age: 61 Year
  Sex: Male
  Weight: 65.77 kg

DRUGS (9)
  1. REVLIMID [Suspect]
     Indication: PLASMA CELL MYELOMA
     Dosage: 25 MG, ONCE DAILY, 1-14 DAYS, PO
     Route: 048
     Dates: start: 201201
  2. ACYCLOVIR (ACICLOVIR) (UNKNOWN) [Concomitant]
  3. CYCLOBENZAPRINE (CYCLOBENZAPRINE) (UNKNOWN) [Concomitant]
  4. FENTANYL (FENTANYL) (UNKNOWN) (FENTANYL) [Concomitant]
  5. LAXATIVE (SENNOSIDE) A+B) (UNKNOWN) [Concomitant]
  6. LISINOPRIL (LISINOPRIL) (UNKNOWN) [Concomitant]
  7. OXYCODONE (OXYCODONE) (UNKNOWN) (OXYCODONE) [Concomitant]
  8. PRILOSEC (OMEPRAZOLE) (UNKNOWN) [Concomitant]
  9. PROCHLORPERAZINE (PROCHLORPERAZINE) (UNKNOWN) [Concomitant]

REACTIONS (1)
  - Pneumonia [None]
